FAERS Safety Report 25858417 (Version 4)
Quarter: 2025Q4

REPORT INFORMATION
  Report Type: Spontaneous
  Country: EU (occurrence: EU)
  Receive Date: 20250929
  Receipt Date: 20251210
  Transmission Date: 20260118
  Serious: Yes (Hospitalization, Other)
  Sender: NOVARTIS
  Company Number: EU-002147023-NVSC2025GR146488

PATIENT
  Sex: Female
  Weight: 4.64 kg

DRUGS (2)
  1. ZOLGENSMA [Suspect]
     Active Substance: ONASEMNOGENE ABEPARVOVEC-XIOI
     Indication: Spinal muscular atrophy
     Dosage: 27.6 ML (2 VIALS X 5.5ML + 2 VIALS X 8.3ML), ONCE/SINGLE
     Route: 042
     Dates: start: 20250710, end: 20250710
  2. Predneau [Concomitant]
     Indication: Product used for unknown indication
     Dosage: 3 MG, QD (0.3 ML X1)
     Route: 065
     Dates: start: 20250707, end: 20250907

REACTIONS (8)
  - Pneumonia aspiration [Not Recovered/Not Resolved]
  - Respiratory distress [Recovering/Resolving]
  - Tachypnoea [Not Recovered/Not Resolved]
  - Dyspnoea [Recovering/Resolving]
  - Viral upper respiratory tract infection [Not Recovered/Not Resolved]
  - Enterovirus test positive [Not Recovered/Not Resolved]
  - Human rhinovirus test positive [Not Recovered/Not Resolved]
  - Neonatal respiratory failure [Not Recovered/Not Resolved]

NARRATIVE: CASE EVENT DATE: 20250905
